FAERS Safety Report 9163967 (Version 1)
Quarter: 2013Q1

REPORT INFORMATION
  Report Type: Spontaneous
  Country: DE (occurrence: DE)
  Receive Date: 20130314
  Receipt Date: 20130314
  Transmission Date: 20140127
  Serious: Yes (Other)
  Sender: FDA-Public Use
  Company Number: DE-GILEAD-2013-0071744

PATIENT
  Age: 81 None
  Sex: Female

DRUGS (5)
  1. RANOLAZINE [Suspect]
     Indication: ANGINA PECTORIS
     Dosage: 375 MG, UNK
     Route: 048
     Dates: start: 201207
  2. RANOLAZINE [Suspect]
     Dosage: UNK
     Dates: start: 20121224, end: 20130102
  3. ISMN [Concomitant]
     Indication: CORONARY ARTERY DISEASE
     Dosage: UNK
  4. PROCORALAN [Concomitant]
     Indication: CORONARY ARTERY DISEASE
     Dosage: UNK
  5. CARMEN                             /00740901/ [Concomitant]
     Indication: CORONARY ARTERY DISEASE
     Dosage: UNK

REACTIONS (4)
  - Hypersensitivity [Recovered/Resolved]
  - Paraesthesia oral [Recovered/Resolved]
  - Swelling face [Recovered/Resolved]
  - Swollen tongue [Recovered/Resolved]
